FAERS Safety Report 16459146 (Version 1)
Quarter: 2019Q2

REPORT INFORMATION
  Report Type: Spontaneous
  Country: NL (occurrence: NL)
  Receive Date: 20190620
  Receipt Date: 20190620
  Transmission Date: 20190711
  Serious: Yes (Hospitalization)
  Sender: FDA-Public Use
  Company Number: NL-MYLANLABS-2019M1057008

PATIENT
  Age: 17 Year
  Sex: Female
  Weight: 65 kg

DRUGS (6)
  1. PROMETAZIN [Concomitant]
     Active Substance: PROMETHAZINE HYDROCHLORIDE
     Dosage: UNK
  2. OLANZAPINE. [Concomitant]
     Active Substance: OLANZAPINE
     Dosage: UNK
  3. CLOMIPRAMINE [Suspect]
     Active Substance: CLOMIPRAMINE
     Indication: DEPRESSED MOOD
     Dosage: 1 DOSAGE FORM
     Route: 048
     Dates: start: 201701
  4. OXAZEPAM. [Concomitant]
     Active Substance: OXAZEPAM
     Dosage: UNK
  5. FLUANXOL                           /00109702/ [Concomitant]
     Active Substance: FLUPENTIXOL
     Dosage: UNK
  6. HALDOL [Concomitant]
     Active Substance: HALOPERIDOL
     Dosage: UNK

REACTIONS (4)
  - Delusion [Recovered/Resolved]
  - Aggression [Recovered/Resolved]
  - Dissociation [Recovered/Resolved]
  - Hallucination [Recovered/Resolved]

NARRATIVE: CASE EVENT DATE: 201701
